FAERS Safety Report 13996309 (Version 8)
Quarter: 2018Q1

REPORT INFORMATION
  Report Type: Report from Study
  Country: US (occurrence: US)
  Receive Date: 20170921
  Receipt Date: 20180222
  Transmission Date: 20180508
  Serious: Yes (Other)
  Sender: FDA-Public Use
  Company Number: US-PFIZER INC-2017376505

PATIENT
  Age: 74 Year
  Sex: Female

DRUGS (2)
  1. IBRANCE [Suspect]
     Active Substance: PALBOCICLIB
     Dosage: 100 MG, CYCLIC (ONCE DAILY FOR 21 DAYS ON, THEN 1 WEEK OFF)
     Route: 048
     Dates: start: 20170922
  2. IBRANCE [Suspect]
     Active Substance: PALBOCICLIB
     Indication: BREAST CANCER
     Dosage: 125 MG, CYCLIC CYCLIC (ONCE DAILY FOR 21 DAYS ON, THEN 1 WEEK OFF)
     Route: 048
     Dates: start: 20170817, end: 20170921

REACTIONS (14)
  - Petechiae [Unknown]
  - Stomatitis [Not Recovered/Not Resolved]
  - Anaemia [Unknown]
  - Fatigue [Not Recovered/Not Resolved]
  - Bone marrow failure [Not Recovered/Not Resolved]
  - Thrombocytopenia [Unknown]
  - White blood cell count decreased [Not Recovered/Not Resolved]
  - Influenza [Unknown]
  - Platelet count decreased [Unknown]
  - Cough [Recovering/Resolving]
  - Lymphopenia [Unknown]
  - Ear discomfort [Unknown]
  - Red blood cell count decreased [Not Recovered/Not Resolved]
  - Neutropenia [Unknown]

NARRATIVE: CASE EVENT DATE: 2017
